FAERS Safety Report 14709245 (Version 4)
Quarter: 2018Q2

REPORT INFORMATION
  Report Type: Spontaneous
  Country: FR (occurrence: FR)
  Receive Date: 20180403
  Receipt Date: 20180426
  Transmission Date: 20180711
  Serious: Yes (Death, Congenital Anomaly)
  Sender: FDA-Public Use
  Company Number: FR-SA-2018SA095063

PATIENT
  Age: 0 Day
  Sex: Female
  Weight: .1 kg

DRUGS (1)
  1. AUBAGIO [Suspect]
     Active Substance: TERIFLUNOMIDE
     Indication: FOETAL EXPOSURE DURING PREGNANCY
     Route: 064

REACTIONS (6)
  - Maternal exposure before pregnancy [Fatal]
  - Foetal malformation [Fatal]
  - Syndactyly [Fatal]
  - Hydrocephalus [Fatal]
  - Foetal disorder [Fatal]
  - Foetal chromosome abnormality [Fatal]

NARRATIVE: CASE EVENT DATE: 20170509
